FAERS Safety Report 20447195 (Version 1)
Quarter: 2022Q1

REPORT INFORMATION
  Report Type: Report from Study
  Country: US (occurrence: US)
  Receive Date: 20220209
  Receipt Date: 20220209
  Transmission Date: 20220423
  Serious: Yes (Other)
  Sender: FDA-Public Use
  Company Number: US-BIOGEN-2022BI01093742

PATIENT
  Sex: Male

DRUGS (2)
  1. VUMERITY [Suspect]
     Active Substance: DIROXIMEL FUMARATE
     Indication: Multiple sclerosis
     Dosage: LOADING DOSE - 231 MG TWICE A DAY X 1 WEEK, AND THEN 462 MG TWICE A DAY.
     Route: 048
     Dates: start: 20210128
  2. VUMERITY [Suspect]
     Active Substance: DIROXIMEL FUMARATE
     Route: 048

REACTIONS (2)
  - Diabetes mellitus [Unknown]
  - Bacterial infection [Unknown]

NARRATIVE: CASE EVENT DATE: 20210101
